FAERS Safety Report 13194586 (Version 1)
Quarter: 2017Q1

REPORT INFORMATION
  Report Type: Spontaneous
  Country: GR (occurrence: GR)
  Receive Date: 20170207
  Receipt Date: 20170207
  Transmission Date: 20170428
  Serious: Yes (Death, Other)
  Sender: FDA-Public Use
  Company Number: GR-MYLANLABS-2017M1006741

PATIENT

DRUGS (3)
  1. CAPECITABINE. [Concomitant]
     Active Substance: CAPECITABINE
     Indication: COLORECTAL CANCER METASTATIC
     Dosage: DURING DAYS 1-7; IN ONE WEEK ON ONE WEEK OFF SCHEDULE
     Route: 048
  2. BEVACIZUMAB [Concomitant]
     Active Substance: BEVACIZUMAB
     Indication: COLORECTAL CANCER METASTATIC
     Dosage: 5MG/KG OVER 60-90 MINUTES ACCORDING TO INVESTIGATOR DISCRETION, ON DAY 1;ADMINISTERED EVERY TWO WEEK
     Route: 042
  3. OXALIPLATIN. [Suspect]
     Active Substance: OXALIPLATIN
     Indication: COLORECTAL CANCER METASTATIC
     Dosage: 85 MG/M2 OVER 240 MINUTES ON DAY 1; ADMINISTERED EVERY TWO WEEKS
     Route: 042

REACTIONS (1)
  - Acute respiratory distress syndrome [Fatal]
